FAERS Safety Report 24117837 (Version 4)
Quarter: 2024Q4

REPORT INFORMATION
  Report Type: Spontaneous
  Country: GB (occurrence: GB)
  Receive Date: 20240722
  Receipt Date: 20241007
  Transmission Date: 20250114
  Serious: Yes (Hospitalization, Other)
  Sender: AUROBINDO
  Company Number: GB-SANDOZ-SDZ2023GB063071

PATIENT
  Sex: Female

DRUGS (18)
  1. CARBOPLATIN [Suspect]
     Active Substance: CARBOPLATIN
     Indication: Triple negative breast cancer
     Dosage: UNK UNK, CYCLICAL (4 CYCLES)
     Route: 065
  2. CARBOPLATIN [Suspect]
     Active Substance: CARBOPLATIN
     Indication: Metaplastic breast carcinoma
     Dosage: UNK UNK, CYCLICAL (3 CYCLES)
     Route: 065
  3. CARBOPLATIN [Suspect]
     Active Substance: CARBOPLATIN
     Dosage: UNK UNK, CYCLICAL (4 CYCLES)
     Route: 065
     Dates: start: 2023
  4. CYCLOPHOSPHAMIDE [Suspect]
     Active Substance: CYCLOPHOSPHAMIDE
     Indication: Triple negative breast cancer
     Dosage: UNK, (4 CYCLES)
     Route: 065
  5. CYCLOPHOSPHAMIDE [Suspect]
     Active Substance: CYCLOPHOSPHAMIDE
     Indication: Metaplastic breast carcinoma
     Dosage: UNK, CYCLIC (4 CYCLES)
     Route: 065
     Dates: start: 2023
  6. EPIRUBICIN [Suspect]
     Active Substance: EPIRUBICIN
     Indication: Triple negative breast cancer
     Dosage: UNK, CYCLICAL (4 CYCLES)
     Route: 065
  7. EPIRUBICIN [Suspect]
     Active Substance: EPIRUBICIN
     Indication: Metaplastic breast carcinoma
     Dosage: UNK
     Route: 065
  8. EPIRUBICIN [Suspect]
     Active Substance: EPIRUBICIN
     Dosage: UNK
     Route: 065
     Dates: start: 2023
  9. EPIRUBICIN [Suspect]
     Active Substance: EPIRUBICIN
     Dosage: UNK, CYCLICAL (4 CYCLES)
     Route: 065
     Dates: start: 2023
  10. KEYTRUDA [Suspect]
     Active Substance: PEMBROLIZUMAB
     Indication: Triple negative breast cancer
     Dosage: UNK, CYCLICAL CYCLIC (4 CYCLES)
     Route: 065
     Dates: start: 20230515
  11. KEYTRUDA [Suspect]
     Active Substance: PEMBROLIZUMAB
     Indication: Metaplastic breast carcinoma
     Dosage: UNK, CYCLICAL CYCLIC (4 CYCLES)
     Route: 065
     Dates: start: 2023, end: 20230523
  12. KEYTRUDA [Suspect]
     Active Substance: PEMBROLIZUMAB
     Dosage: UNK, CYCLICAL CYCLIC (4 CYCLES)
     Route: 065
     Dates: start: 20230523, end: 202305
  13. KEYTRUDA [Suspect]
     Active Substance: PEMBROLIZUMAB
     Dosage: UNK, CYCLICAL CYCLIC (4 CYCLES)
     Route: 065
     Dates: start: 20230523
  14. PACLITAXEL [Suspect]
     Active Substance: PACLITAXEL
     Indication: Triple negative breast cancer
     Dosage: UNK
     Route: 065
  15. PACLITAXEL [Suspect]
     Active Substance: PACLITAXEL
     Indication: Metaplastic breast carcinoma
     Dosage: UNK, CYCLICAL  (CYCLIC (4 CYCLES) )
     Route: 065
     Dates: start: 2023
  16. PACLITAXEL [Suspect]
     Active Substance: PACLITAXEL
     Dosage: UNK, CYCLICAL (CYCLIC (3 CYCLES) )
     Route: 065
     Dates: start: 2023
  17. PACLITAXEL [Suspect]
     Active Substance: PACLITAXEL
     Dosage: UNK, CYCLICAL (4 CYCLES)
     Route: 065
     Dates: start: 20230515, end: 20230515
  18. PACLITAXEL [Suspect]
     Active Substance: PACLITAXEL
     Dosage: UNK, CYCLICAL (CYCLIC (4 CYCLES))
     Route: 065
     Dates: start: 2023, end: 2023

REACTIONS (6)
  - Hypertransaminasaemia [Recovering/Resolving]
  - Hepatic function abnormal [Recovering/Resolving]
  - Pneumonitis [Recovering/Resolving]
  - Therapy non-responder [Unknown]
  - Drug ineffective [Unknown]
  - Neoplasm progression [Unknown]

NARRATIVE: CASE EVENT DATE: 20230101
